FAERS Safety Report 4557730-0 (Version None)
Quarter: 2005Q1

REPORT INFORMATION
  Report Type: 
  Country: None (occurrence: None)
  Receive Date: 20050118
  Receipt Date: 20050107
  Transmission Date: 20050727
  Serious: Yes (Hospitalization, Other)
  Sender: FDA-Public Use
  Company Number: FRWYE323807JAN05

PATIENT
  Age: 91 Year
  Sex: Female

DRUGS (4)
  1. BISOPROLOL FUMARATE [Suspect]
     Indication: HYPERTENSION
     Dosage: 5 MG 1X PER 1 DAY ORAL
     Route: 048
  2. ALDACTONE [Suspect]
  3. KETOPROFEN [Suspect]
  4. LASIX [Suspect]

REACTIONS (6)
  - CONDITION AGGRAVATED [None]
  - DEHYDRATION [None]
  - HYPONATRAEMIA [None]
  - MALAISE [None]
  - RENAL FAILURE [None]
  - SINUS BRADYCARDIA [None]
